FAERS Safety Report 24972243 (Version 1)
Quarter: 2025Q1

REPORT INFORMATION
  Report Type: Spontaneous
  Country: US (occurrence: US)
  Receive Date: 20250214
  Receipt Date: 20250214
  Transmission Date: 20250409
  Serious: Yes (Other)
  Sender: SANOFI AVENTIS
  Company Number: US-SA-2025SA043968

PATIENT
  Sex: Female

DRUGS (25)
  1. DUPIXENT [Suspect]
     Active Substance: DUPILUMAB
     Indication: Dermatitis allergic
     Dosage: 300 MG, QOW
     Route: 058
  2. AMLODIPINE BESYLATE [Concomitant]
     Active Substance: AMLODIPINE BESYLATE
  3. BIOTIN [Concomitant]
     Active Substance: BIOTIN
  4. BUMETANIDE [Concomitant]
     Active Substance: BUMETANIDE
  5. CARVEDILOL [Concomitant]
     Active Substance: CARVEDILOL
  6. CORLANOR [Concomitant]
     Active Substance: IVABRADINE HYDROCHLORIDE
  7. DEXILANT [Concomitant]
     Active Substance: DEXLANSOPRAZOLE
  8. DULOXETINE HYDROCHLORIDE [Concomitant]
     Active Substance: DULOXETINE HYDROCHLORIDE
  9. ELIQUIS [Concomitant]
     Active Substance: APIXABAN
  10. EZETIMIBE [Concomitant]
     Active Substance: EZETIMIBE
  11. FLAXSEED [Concomitant]
     Active Substance: FLAX SEED
  12. GABAPENTIN [Concomitant]
     Active Substance: GABAPENTIN
  13. HYDROCODONE [Concomitant]
     Active Substance: HYDROCODONE
  14. JARDIANCE [Concomitant]
     Active Substance: EMPAGLIFLOZIN
  15. LEVALBUTEROL [Concomitant]
     Active Substance: LEVALBUTEROL
  16. LEVOTHYROXINE SODIUM [Concomitant]
     Active Substance: LEVOTHYROXINE SODIUM
  17. MAGNESIUM [Concomitant]
     Active Substance: MAGNESIUM
  18. MELATONIN [Concomitant]
     Active Substance: MELATONIN
  19. MIDODRINE HYDROCHLORIDE [Concomitant]
     Active Substance: MIDODRINE HYDROCHLORIDE
  20. OZEMPIC [Concomitant]
     Active Substance: SEMAGLUTIDE
  21. ROSUVASTATIN [Concomitant]
     Active Substance: ROSUVASTATIN
  22. SPIRONOLACTONE [Concomitant]
     Active Substance: SPIRONOLACTONE
  23. STIOLTO RESPIMAT [Concomitant]
     Active Substance: OLODATEROL HYDROCHLORIDE\TIOTROPIUM BROMIDE MONOHYDRATE
  24. TOUJEO MAX [Concomitant]
     Active Substance: INSULIN GLARGINE
  25. ZANAFLEX [Concomitant]
     Active Substance: TIZANIDINE HYDROCHLORIDE

REACTIONS (3)
  - Loss of consciousness [Recovered/Resolved]
  - Loss of control of legs [Recovered/Resolved]
  - Fall [Recovered/Resolved]
